FAERS Safety Report 8772979 (Version 1)
Quarter: 2012Q4

REPORT INFORMATION
  Report Type: 
  Country: US (occurrence: US)
  Receive Date: 20120907
  Receipt Date: 20120907
  Transmission Date: 20130627
  Serious: No
  Sender: FDA-Public Use
  Company Number: US-009507513-1209USA000688

PATIENT
  Sex: Female

DRUGS (3)
  1. ZIOPTAN [Suspect]
     Indication: INTRAOCULAR PRESSURE INCREASED
     Dosage: 1 DF, qd
     Route: 031
     Dates: start: 20120813, end: 20120823
  2. AMLODIPINE BESYLATE (+) BENAZEPRIL HYDROCHLORIDE [Concomitant]
     Dosage: 5/20
  3. DICLOFENAC [Concomitant]
     Dosage: sod 75mg

REACTIONS (2)
  - Cheilitis [Recovering/Resolving]
  - Lip swelling [Recovering/Resolving]
